FAERS Safety Report 16590860 (Version 2)
Quarter: 2019Q3

REPORT INFORMATION
  Report Type: Spontaneous
  Country: US (occurrence: US)
  Receive Date: 20190718
  Receipt Date: 20190724
  Transmission Date: 20191004
  Serious: Yes (Hospitalization, Other)
  Sender: FDA-Public Use
  Company Number: US-PFIZER INC-2019304662

PATIENT
  Age: 7 Month
  Sex: Male

DRUGS (2)
  1. DRUG, UNSPECIFIED [Suspect]
     Active Substance: UNSPECIFIED INGREDIENT
     Dosage: UNK
     Route: 030
     Dates: start: 19660429
  2. DRUG, UNSPECIFIED [Suspect]
     Active Substance: UNSPECIFIED INGREDIENT
     Dosage: UNK
     Route: 030
     Dates: start: 19660430

REACTIONS (2)
  - Gangrene [Recovering/Resolving]
  - Embolia cutis medicamentosa [Recovering/Resolving]

NARRATIVE: CASE EVENT DATE: 19660430
